FAERS Safety Report 9780251 (Version 1)
Quarter: 2013Q4

REPORT INFORMATION
  Report Type: Spontaneous
  Country: FR (occurrence: FR)
  Receive Date: 20131223
  Receipt Date: 20131223
  Transmission Date: 20140711
  Serious: Yes (Hospitalization)
  Sender: FDA-Public Use
  Company Number: FR-BRISTOL-MYERS SQUIBB COMPANY-19925858

PATIENT
  Age: 66 Year
  Sex: Male

DRUGS (4)
  1. COUMADINE [Suspect]
     Indication: ATRIAL FIBRILLATION
     Dosage: SCORED TABLET :INT ON 16-OCT-2013. 2 TO 3 MG A DAY WAS REINTRODUCED
     Route: 048
     Dates: start: 20131016
  2. XARELTO [Interacting]
     Indication: ATRIAL FIBRILLATION
     Route: 048
     Dates: start: 20130621, end: 20131013
  3. ASPEGIC [Interacting]
     Dosage: 100 MG POWDER FOR ORAL SOLUTION IN SACHET:ASPEGIC NOURRISSONS
     Dates: start: 20020117
  4. LOVENOX [Interacting]
     Dosage: 6000 IU TWICE A DAY. INT ON 17OC13
     Route: 058
     Dates: start: 20131014

REACTIONS (2)
  - Gingival bleeding [Not Recovered/Not Resolved]
  - Drug interaction [Unknown]
